FAERS Safety Report 12576064 (Version 1)
Quarter: 2016Q3

REPORT INFORMATION
  Report Type: Spontaneous
  Country: US (occurrence: US)
  Receive Date: 20160720
  Receipt Date: 20160720
  Transmission Date: 20161109
  Serious: No
  Sender: FDA-Public Use
  Company Number: US-AMGEN-USASP2016090924

PATIENT
  Age: 61 Year
  Sex: Female

DRUGS (1)
  1. ENBREL [Suspect]
     Active Substance: ETANERCEPT
     Indication: PRODUCT USED FOR UNKNOWN INDICATION
     Dosage: UNK UNK, QWK
     Route: 065
     Dates: start: 201411

REACTIONS (11)
  - Angiopathy [Not Recovered/Not Resolved]
  - Flushing [Unknown]
  - Spinal disorder [Not Recovered/Not Resolved]
  - Drug dose omission [Unknown]
  - Limb asymmetry [Unknown]
  - Incorrect product storage [Unknown]
  - Urinary tract infection [Unknown]
  - Fatigue [Unknown]
  - Rash [Not Recovered/Not Resolved]
  - Nasopharyngitis [Unknown]
  - Pelvic deformity [Not Recovered/Not Resolved]

NARRATIVE: CASE EVENT DATE: 2016
